FAERS Safety Report 7355756-5 (Version None)
Quarter: 2011Q1

REPORT INFORMATION
  Report Type: 
  Country: None (occurrence: None)
  Receive Date: 20110316
  Receipt Date: 20110308
  Transmission Date: 20110831
  Serious: Yes (Other)
  Sender: FDA-Public Use
  Company Number: US-TEVA-270721USA

PATIENT
  Sex: Female

DRUGS (2)
  1. METOCLOPRAMIDE HCL [Suspect]
     Route: 064
  2. METOCLOPRAMIDE HCL [Suspect]

REACTIONS (1)
  - TARDIVE DYSKINESIA [None]
